FAERS Safety Report 10593956 (Version 3)
Quarter: 2018Q4

REPORT INFORMATION
  Report Type: Report from Study
  Country: US (occurrence: US)
  Receive Date: 20141119
  Receipt Date: 20181218
  Transmission Date: 20190204
  Serious: Yes (Other)
  Sender: FDA-Public Use
  Company Number: US-TEVA-523108USA

PATIENT
  Age: 21 Year
  Sex: Female

DRUGS (2)
  1. ZITHROMAX [Concomitant]
     Active Substance: AZITHROMYCIN DIHYDRATE
     Route: 065
     Dates: start: 20141101
  2. CLARAVIS [Suspect]
     Active Substance: ISOTRETINOIN
     Dates: start: 20140828, end: 20141013

REACTIONS (2)
  - Maternal exposure during pregnancy [Unknown]
  - Unintended pregnancy [Unknown]

NARRATIVE: CASE EVENT DATE: 20141013
